FAERS Safety Report 8289650-2 (Version None)
Quarter: 2012Q2

REPORT INFORMATION
  Report Type: 
  Country: None (occurrence: None)
  Receive Date: 20120417
  Receipt Date: 20120410
  Transmission Date: 20120825
  Serious: Yes (Other)
  Sender: FDA-Public Use
  Company Number: DE-PFIZER INC-2012082671

PATIENT
  Sex: Male

DRUGS (2)
  1. METHADONE HCL [Suspect]
  2. LYRICA [Suspect]
     Dosage: 900 MG, DAILY, SOMETIMES MORE

REACTIONS (5)
  - INTENTIONAL OVERDOSE [None]
  - DELUSION [None]
  - PARADOXICAL DRUG REACTION [None]
  - ANXIETY [None]
  - THINKING ABNORMAL [None]
